FAERS Safety Report 13163984 (Version 2)
Quarter: 2017Q1

REPORT INFORMATION
  Report Type: Spontaneous
  Country: US (occurrence: US)
  Receive Date: 20170130
  Receipt Date: 20170209
  Transmission Date: 20170428
  Serious: Yes (Hospitalization, Other)
  Sender: FDA-Public Use
  Company Number: US-ASTELLAS-2017US002891

PATIENT
  Age: 56 Year
  Sex: Male

DRUGS (2)
  1. TACROLIMUS. [Suspect]
     Active Substance: TACROLIMUS
     Indication: LIVER TRANSPLANT
     Dosage: 0.5 MG, TWICE DAILY
     Route: 048
  2. TURMERIC                           /01079601/ [Interacting]
     Active Substance: TURMERIC
     Indication: ROUTINE HEALTH MAINTENANCE
     Dosage: UNK UNK, UNKNOWN FREQ. (15 PLUS SPOONFULS DAILY)
     Route: 065

REACTIONS (7)
  - Immunosuppressant drug level increased [Recovering/Resolving]
  - Liver transplant rejection [Unknown]
  - Food interaction [Recovering/Resolving]
  - Acute kidney injury [Recovering/Resolving]
  - Hepatitis C [Recovering/Resolving]
  - Transplant rejection [Unknown]
  - Nephropathy toxic [Recovering/Resolving]
